FAERS Safety Report 8374292-0 (Version None)
Quarter: 2012Q2

REPORT INFORMATION
  Report Type: 
  Country: None (occurrence: None)
  Receive Date: 20120521
  Receipt Date: 20120515
  Transmission Date: 20120825
  Serious: Yes (Other)
  Sender: FDA-Public Use
  Company Number: PHHY2012FR034304

PATIENT
  Age: 74 Year
  Sex: Female

DRUGS (2)
  1. SIMVASTATIN [Suspect]
     Dosage: UNK
     Dates: start: 19990101
  2. NORFLOXACIN [Interacting]
     Indication: CYSTITIS
     Dosage: UNK
     Dates: start: 20100701

REACTIONS (5)
  - RHABDOMYOLYSIS [None]
  - MYOPATHY [None]
  - MUSCLE ATROPHY [None]
  - MUSCLE NECROSIS [None]
  - DRUG INTERACTION [None]
